FAERS Safety Report 25747241 (Version 1)
Quarter: 2025Q3

REPORT INFORMATION
  Report Type: Spontaneous
  Country: US (occurrence: US)
  Receive Date: 20250901
  Receipt Date: 20250901
  Transmission Date: 20251021
  Serious: Yes (Hospitalization, Other)
  Sender: CADILA
  Company Number: US-CPL-005706

PATIENT
  Age: 87 Year
  Sex: Male

DRUGS (1)
  1. HYDRALAZINE [Suspect]
     Active Substance: HYDRALAZINE HYDROCHLORIDE
     Indication: Hypertension

REACTIONS (3)
  - Glomerulonephritis rapidly progressive [Unknown]
  - Acute kidney injury [Not Recovered/Not Resolved]
  - Haemoptysis [Unknown]
